FAERS Safety Report 18355009 (Version 3)
Quarter: 2021Q4

REPORT INFORMATION
  Report Type: Spontaneous
  Country: US (occurrence: US)
  Receive Date: 20201007
  Receipt Date: 20211125
  Transmission Date: 20220303
  Serious: No
  Sender: FDA-Public Use
  Company Number: US-PFIZER INC-2020383965

PATIENT
  Age: 73 Year
  Sex: Male
  Weight: 56.689 kg

DRUGS (3)
  1. INLYTA [Suspect]
     Active Substance: AXITINIB
     Indication: Renal cell carcinoma
     Dosage: 5 MG, 2X/DAY
     Route: 048
     Dates: start: 20190906
  2. INLYTA [Suspect]
     Active Substance: AXITINIB
     Indication: Psoriatic arthropathy
     Dosage: 5 MG, 1X/DAY
     Dates: start: 202009
  3. INLYTA [Suspect]
     Active Substance: AXITINIB
     Dosage: 5 MG, 2X/DAY
     Route: 048
     Dates: start: 20190906

REACTIONS (6)
  - Decreased appetite [Recovered/Resolved]
  - Constipation [Unknown]
  - Neoplasm progression [Unknown]
  - Diarrhoea [Unknown]
  - Abdominal pain [Recovered/Resolved]
  - Back pain [Not Recovered/Not Resolved]

NARRATIVE: CASE EVENT DATE: 20210601
